FAERS Safety Report 17375066 (Version 1)
Quarter: 2020Q1

REPORT INFORMATION
  Report Type: Spontaneous
  Country: US (occurrence: US)
  Receive Date: 20200206
  Receipt Date: 20200206
  Transmission Date: 20200409
  Serious: No
  Sender: FDA-Public Use
  Company Number: US-MACLEODS PHARMACEUTICALS US LTD-MAC2020024933

PATIENT

DRUGS (7)
  1. METRONIDAZOLE PRASCO [Suspect]
     Active Substance: METRONIDAZOLE
     Indication: ROSACEA
     Dosage: UNK, METRONIDAZOLE PRASCO (METRONIDAZOLE)
     Route: 065
     Dates: start: 20190315
  2. CARBAMAZEPINE TORRENT [Suspect]
     Active Substance: CARBAMAZEPINE
     Indication: BIPOLAR DISORDER
     Dosage: UNK, CARBAMAZEPINE TORRENTS (CARBAMAZEPINE)
     Route: 065
     Dates: start: 20190501
  3. MONTELUKAST 10 MG [Suspect]
     Active Substance: MONTELUKAST SODIUM
     Indication: ANXIETY
  4. CITALOPRAM [Suspect]
     Active Substance: CITALOPRAM HYDROBROMIDE
     Indication: ANXIETY
     Dosage: UNK, CITALOPRAM TORRENTS (CITALOPRAM)
     Route: 065
     Dates: start: 20191018
  5. CITALOPRAM [Suspect]
     Active Substance: CITALOPRAM HYDROBROMIDE
     Indication: DEPRESSION
  6. MONTELUKAST 10 MG [Suspect]
     Active Substance: MONTELUKAST SODIUM
     Indication: HYPERSENSITIVITY
     Dosage: 10 MILLIGRAM, QD
     Route: 065
     Dates: start: 201905
  7. METRONIDAZOLE PRASCO [Suspect]
     Active Substance: METRONIDAZOLE
     Indication: ACNE

REACTIONS (5)
  - Nasal inflammation [Not Recovered/Not Resolved]
  - Rosacea [Not Recovered/Not Resolved]
  - Condition aggravated [Unknown]
  - Erythema [Not Recovered/Not Resolved]
  - Acne [Not Recovered/Not Resolved]
